FAERS Safety Report 4606015-2 (Version None)
Quarter: 2005Q2

REPORT INFORMATION
  Report Type: 
  Country: None (occurrence: None)
  Receive Date: 20050303
  Receipt Date: 20041101
  Transmission Date: 20051028
  Serious: No
  Sender: FDA-Public Use
  Company Number: 200420938BWH

PATIENT
  Age: 51 Year
  Sex: Male

DRUGS (6)
  1. LEVITRA [Suspect]
     Indication: ERECTILE DYSFUNCTION
     Dosage: 5 MG, TOTAL DAILY, ORAL
     Route: 048
     Dates: start: 20041029
  2. CIALIS [Concomitant]
  3. VIAGRA [Concomitant]
  4. WELLBUTRIN SR [Concomitant]
  5. MS CONTIN [Concomitant]
  6. OXYCODONE HCL [Concomitant]

REACTIONS (2)
  - HEADACHE [None]
  - NASAL CONGESTION [None]
